FAERS Safety Report 5618019-1 (Version None)
Quarter: 2008Q1

REPORT INFORMATION
  Report Type: 
  Country: None (occurrence: None)
  Receive Date: 20080207
  Receipt Date: 20070914
  Transmission Date: 20080703
  Serious: No
  Sender: FDA-Public Use
  Company Number: A0682161A

PATIENT
  Age: 70 Year
  Sex: Female

DRUGS (2)
  1. PAXIL [Suspect]
     Indication: DRUG USE FOR UNKNOWN INDICATION
     Dosage: 10MG UNKNOWN
     Route: 048
  2. FENTANYL TRANSDERM [Concomitant]
     Route: 065

REACTIONS (3)
  - BACK PAIN [None]
  - PALPITATIONS [None]
  - TINNITUS [None]
